FAERS Safety Report 8400586-6 (Version None)
Quarter: 2012Q2

REPORT INFORMATION
  Report Type: 
  Country: None (occurrence: None)
  Receive Date: 20120531
  Receipt Date: 20120524
  Transmission Date: 20120825
  Serious: Yes (Other)
  Sender: FDA-Public Use
  Company Number: CHPA2012GB008708

PATIENT
  Sex: Female
  Weight: 77.2 kg

DRUGS (6)
  1. NICOTINE [Suspect]
     Dosage: 48 GUMS TOTAL
     Dates: start: 20100510
  2. SEROQUEL [Concomitant]
  3. NICOTINE [Suspect]
     Dosage: 8 GUMS TOTAL
     Dates: start: 20040101
  4. PHENERGAN [Concomitant]
  5. NICOTINE [Suspect]
     Indication: SMOKING CESSATION THERAPY
     Dosage: 9-10 GUMS A DAY, FIVE YEARS
  6. TRAMADOL HCL [Concomitant]

REACTIONS (5)
  - HYPERHIDROSIS [None]
  - DRUG DEPENDENCE [None]
  - HEADACHE [None]
  - NICOTINE DEPENDENCE [None]
  - INCORRECT DRUG ADMINISTRATION DURATION [None]
